FAERS Safety Report 8111572-8 (Version None)
Quarter: 2012Q1

REPORT INFORMATION
  Report Type: 
  Country: None (occurrence: None)
  Receive Date: 20120131
  Receipt Date: 20120103
  Transmission Date: 20120608
  Serious: Yes (Death, Hospitalization)
  Sender: FDA-Public Use
  Company Number: 2011PROUSA00920

PATIENT
  Age: 69 Year
  Sex: Male
  Weight: 92.6 kg

DRUGS (3)
  1. PROVENGE [Suspect]
     Indication: PROSTATE CANCER METASTATIC
     Dosage: 250 ML, SINGLE, INTRAVENOUS
     Route: 042
     Dates: start: 20111117, end: 20111117
  2. PROVENGE [Suspect]
     Indication: PROSTATE CANCER METASTATIC
     Dosage: 250 ML, SINGLE, INTRAVENOUS
     Route: 042
     Dates: start: 20111208, end: 20111208
  3. PROVENGE [Suspect]

REACTIONS (8)
  - METASTASES TO BONE [None]
  - DECREASED APPETITE [None]
  - POLLAKIURIA [None]
  - WEIGHT DECREASED [None]
  - NAUSEA [None]
  - PNEUMOTHORAX [None]
  - ERECTILE DYSFUNCTION [None]
  - HOT FLUSH [None]
